FAERS Safety Report 16415344 (Version 1)
Quarter: 2019Q2

REPORT INFORMATION
  Report Type: Spontaneous
  Country: US (occurrence: US)
  Receive Date: 20190611
  Receipt Date: 20190611
  Transmission Date: 20190711
  Serious: No
  Sender: FDA-Public Use
  Company Number: US-SA-2019SA068226

PATIENT
  Age: 32 Year
  Sex: Male

DRUGS (1)
  1. LOVENOX [Suspect]
     Active Substance: ENOXAPARIN SODIUM
     Indication: THROMBOSIS
     Dosage: 100 MG, BID
     Route: 065
     Dates: start: 20190204

REACTIONS (3)
  - Epistaxis [Unknown]
  - Device leakage [Unknown]
  - Contusion [Unknown]
